FAERS Safety Report 6895926-3 (Version None)
Quarter: 2010Q3

REPORT INFORMATION
  Report Type: 
  Country: None (occurrence: None)
  Receive Date: 20100802
  Receipt Date: 20100721
  Transmission Date: 20110219
  Serious: Yes (Life-Threatening, Hospitalization, Other)
  Sender: FDA-Public Use
  Company Number: US-BAYER-201028812NA

PATIENT
  Age: 46 Year
  Sex: Male

DRUGS (1)
  1. AVELOX [Suspect]
     Indication: SINUS DISORDER
     Route: 048
     Dates: start: 20100721, end: 20100721

REACTIONS (5)
  - ANAPHYLACTIC REACTION [None]
  - DYSPNOEA [None]
  - HYPOAESTHESIA FACIAL [None]
  - SWELLING FACE [None]
  - SWOLLEN TONGUE [None]
